FAERS Safety Report 24718691 (Version 2)
Quarter: 2024Q4

REPORT INFORMATION
  Report Type: Spontaneous
  Country: PL (occurrence: PL)
  Receive Date: 20241210
  Receipt Date: 20241217
  Transmission Date: 20250114
  Serious: Yes (Other)
  Sender: SANDOZ
  Company Number: PL-AUROBINDO-AUR-APL-2024-057913

PATIENT
  Age: 90 Year
  Sex: Female

DRUGS (7)
  1. AMOXICILLIN\CLAVULANIC ACID [Suspect]
     Active Substance: AMOXICILLIN\CLAVULANIC ACID
     Indication: Skin lesion
     Dosage: UNK
     Route: 065
  2. DESLORATADINE [Suspect]
     Active Substance: DESLORATADINE
     Indication: Skin lesion
     Dosage: UNK
     Route: 065
  3. QUETIAPINE [Suspect]
     Active Substance: QUETIAPINE
     Indication: Product used for unknown indication
     Dosage: UNK
     Route: 065
  4. RIVAROXABAN [Suspect]
     Active Substance: RIVAROXABAN
     Indication: Product used for unknown indication
     Dosage: UNK
     Route: 065
  5. BETAMETHASONE DIPROPIONATE [Concomitant]
     Active Substance: BETAMETHASONE DIPROPIONATE
     Indication: Skin lesion
     Dosage: UNK
     Route: 061
  6. CLOTRIMAZOLE [Concomitant]
     Active Substance: CLOTRIMAZOLE
     Indication: Skin lesion
     Dosage: UNK
     Route: 061
  7. GENTAMICIN SULFATE [Concomitant]
     Active Substance: GENTAMICIN SULFATE
     Indication: Skin lesion
     Dosage: UNK
     Route: 061

REACTIONS (4)
  - Pemphigoid [Unknown]
  - Basal cell carcinoma [Unknown]
  - Condition aggravated [Unknown]
  - Medication error [Unknown]
